FAERS Safety Report 6527397-0 (Version None)
Quarter: 2009Q4

REPORT INFORMATION
  Report Type: 
  Country: None (occurrence: None)
  Receive Date: 20091222
  Receipt Date: 20090929
  Transmission Date: 20100525
  Serious: No
  Sender: FDA-Public Use
  Company Number: ALL1-2009-02967

PATIENT
  Age: 10 Year
  Sex: Female
  Weight: 30.8 kg

DRUGS (3)
  1. VYVANSE [Suspect]
     Indication: ATTENTION DEFICIT/HYPERACTIVITY DISORDER
     Dosage: 30; 20 MG, 1X/DAY:QD, ORAL
     Route: 048
     Dates: start: 20080801, end: 20080901
  2. VYVANSE [Suspect]
     Indication: ATTENTION DEFICIT/HYPERACTIVITY DISORDER
     Dosage: 30; 20 MG, 1X/DAY:QD, ORAL
     Route: 048
     Dates: start: 20080901, end: 20080901
  3. PLYETHYLENE GLYCOL (MACROGOL) [Concomitant]

REACTIONS (4)
  - AGGRESSION [None]
  - CRYING [None]
  - IRRITABILITY [None]
  - NEGATIVISM [None]
